FAERS Safety Report 5533608-0 (Version None)
Quarter: 2007Q4

REPORT INFORMATION
  Report Type: 
  Country: None (occurrence: None)
  Receive Date: 20071129
  Receipt Date: 20071113
  Transmission Date: 20080405
  Serious: Yes (Death)
  Sender: FDA-Public Use
  Company Number: 8027703

PATIENT
  Sex: Female

DRUGS (3)
  1. KEPPRA [Suspect]
     Indication: CONVULSION
     Dosage: 500 MG 2/D IV
     Route: 042
     Dates: start: 20071016, end: 20071017
  2. MORPHINE [Concomitant]
  3. ATIVAN [Concomitant]

REACTIONS (1)
  - DEATH [None]
